FAERS Safety Report 7601963-3 (Version None)
Quarter: 2011Q3

REPORT INFORMATION
  Report Type: 
  Country: None (occurrence: None)
  Receive Date: 20110711
  Receipt Date: 20110707
  Transmission Date: 20111222
  Serious: Yes (Hospitalization)
  Sender: FDA-Public Use
  Company Number: BR-B.I. PHARMACEUTICALS,INC./RIDGEFIELD-2011-BR-00672BR

PATIENT
  Sex: Female

DRUGS (3)
  1. DUOVENT [Suspect]
     Indication: CHRONIC OBSTRUCTIVE PULMONARY DISEASE
     Route: 055
  2. BEROTEC [Suspect]
     Indication: DYSPNOEA
     Route: 055
     Dates: start: 20110401, end: 20110401
  3. ATROVENT [Suspect]
     Indication: DYSPNOEA
     Route: 055
     Dates: start: 20110401, end: 20110401

REACTIONS (3)
  - DYSPNOEA [None]
  - HYPERSENSITIVITY [None]
  - NODULE [None]
